FAERS Safety Report 5034382-7 (Version None)
Quarter: 2006Q2

REPORT INFORMATION
  Report Type: 
  Country: None (occurrence: None)
  Receive Date: 20060518
  Receipt Date: 20050808
  Transmission Date: 20061013
  Serious: Yes (Other)
  Sender: FDA-Public Use
  Company Number: 2005104551

PATIENT
  Age: 40 Year
  Sex: Female
  Weight: 61.2356 kg

DRUGS (5)
  1. DEPO-PROVERA [Suspect]
     Indication: MENSTRUAL DISORDER
     Dosage: SEE IMAGE
     Route: 030
     Dates: start: 19930701, end: 19930701
  2. DEPO-PROVERA [Suspect]
     Indication: MIGRAINE
     Dosage: SEE IMAGE
     Route: 030
     Dates: start: 19930701, end: 19930701
  3. DEPO-PROVERA [Suspect]
     Indication: MENSTRUAL DISORDER
     Dosage: SEE IMAGE
     Route: 030
     Dates: start: 20050301, end: 20050301
  4. DEPO-PROVERA [Suspect]
     Indication: MIGRAINE
     Dosage: SEE IMAGE
     Route: 030
     Dates: start: 20050301, end: 20050301
  5. FIORINAL [Concomitant]

REACTIONS (1)
  - OSTEOPENIA [None]
